FAERS Safety Report 5352559-8 (Version None)
Quarter: 2007Q2

REPORT INFORMATION
  Report Type: 
  Country: None (occurrence: None)
  Receive Date: 20070518
  Receipt Date: 20070118
  Transmission Date: 20071010
  Serious: Yes (Hospitalization)
  Sender: FDA-Public Use
  Company Number: Q07-005

PATIENT
  Age: 65 Year
  Sex: Male
  Weight: 87 kg

DRUGS (14)
  1. SAMARIUM SM-153 [Suspect]
     Indication: METASTASES TO BONE
     Dosage: 0.75 MCI/KG
     Dates: start: 20051117, end: 20060209
  2. SAMARIUM SM-153 [Suspect]
     Indication: PROSTATE CANCER
     Dosage: 0.75 MCI/KG
     Dates: start: 20051117, end: 20060209
  3. ZOLEDRONIC ACID [Suspect]
     Indication: METASTASES TO BONE
     Dosage: 4 MG IV Q4WEEKS
     Route: 042
     Dates: start: 20061219
  4. ZOLEDRONIC ACID [Suspect]
     Indication: PROSTATE CANCER
     Dosage: 4 MG IV Q4WEEKS
     Route: 042
     Dates: start: 20061219
  5. ATENOLOL [Concomitant]
  6. GLYBURIDE [Concomitant]
  7. CALCIUM CHLORIDE [Concomitant]
  8. VITAMIN CAP [Concomitant]
  9. LUPRON [Concomitant]
  10. DES [Concomitant]
  11. WARFARIN SODIUM [Concomitant]
  12. MORPHINE [Concomitant]
  13. DEXAMETHASONE [Concomitant]
  14. JANTOVEN [Concomitant]

REACTIONS (2)
  - DEEP VEIN THROMBOSIS [None]
  - DYSPNOEA EXERTIONAL [None]
